FAERS Safety Report 4877142-X (Version None)
Quarter: 2005Q4

REPORT INFORMATION
  Report Type: 
  Country: None (occurrence: None)
  Receive Date: 20051206
  Receipt Date: 20050810
  Transmission Date: 20060501
  Serious: No
  Sender: FDA-Public Use
  Company Number: USA0508105394

PATIENT
  Age: 48 Year
  Sex: Male

DRUGS (4)
  1. CYMBALTA [Suspect]
     Dosage: 60 MG
     Dates: start: 20050727
  2. BETA BLOCKER [Concomitant]
  3. ACE INHIBITOR [Concomitant]
  4. CALCIUM CHANNEL BLOCKERS [Concomitant]

REACTIONS (3)
  - ABNORMAL DREAMS [None]
  - DYSARTHRIA [None]
  - DYSKINESIA [None]
